FAERS Safety Report 17979267 (Version 2)
Quarter: 2020Q3

REPORT INFORMATION
  Report Type: Spontaneous
  Country: CZ (occurrence: CZ)
  Receive Date: 20200703
  Receipt Date: 20200704
  Transmission Date: 20201103
  Serious: Yes (Death, Hospitalization)
  Sender: FDA-Public Use
  Company Number: CZ-B.I. PHARMACEUTICALS,INC./RIDGEFIELD-2020-BI-032787

PATIENT
  Age: 73 Year
  Sex: Female

DRUGS (1)
  1. PRADAXA [Suspect]
     Active Substance: DABIGATRAN ETEXILATE MESYLATE
     Indication: ATRIAL FIBRILLATION
     Route: 048

REACTIONS (5)
  - Haematoma [Recovered/Resolved]
  - Rib fracture [Unknown]
  - Multiple organ dysfunction syndrome [Fatal]
  - Fall [Unknown]
  - Contusion [Unknown]

NARRATIVE: CASE EVENT DATE: 20200528
